FAERS Safety Report 7691945-8 (Version None)
Quarter: 2011Q3

REPORT INFORMATION
  Report Type: 
  Country: None (occurrence: None)
  Receive Date: 20110818
  Receipt Date: 20110815
  Transmission Date: 20111222
  Serious: Yes (Hospitalization)
  Sender: FDA-Public Use
  Company Number: DE-TEVA-296665GER

PATIENT
  Age: 92 Year
  Sex: Female

DRUGS (4)
  1. BETA BLOCKER [Concomitant]
  2. COUMADIN [Concomitant]
  3. ACE INHIBITOR [Concomitant]
  4. TAMOXIFEN CITRATE [Suspect]
     Indication: BREAST CANCER
     Dosage: 30 MILLIGRAM;

REACTIONS (1)
  - STRESS CARDIOMYOPATHY [None]
